FAERS Safety Report 15484081 (Version 1)
Quarter: 2018Q4

REPORT INFORMATION
  Report Type: Spontaneous
  Country: CZ (occurrence: CZ)
  Receive Date: 20181010
  Receipt Date: 20181010
  Transmission Date: 20190205
  Serious: Yes (Other)
  Sender: FDA-Public Use
  Company Number: CZ-ELI_LILLY_AND_COMPANY-CZ201712010232

PATIENT
  Age: 67 Year
  Sex: Male

DRUGS (4)
  1. ERBITUX [Suspect]
     Active Substance: CETUXIMAB
     Indication: ADENOCARCINOMA OF COLON
     Dosage: UNK, UNKNOWN
     Route: 042
     Dates: start: 201401, end: 201411
  2. OXALIPLATIN. [Suspect]
     Active Substance: OXALIPLATIN
     Indication: ADENOCARCINOMA OF COLON
     Dosage: UNK, UNKNOWN
     Route: 042
     Dates: start: 201401, end: 201411
  3. FOLINIC ACID                       /00566702/ [Suspect]
     Active Substance: LEUCOVORIN CALCIUM
     Indication: ADENOCARCINOMA OF COLON
     Dosage: UNK, UNKNOWN
     Route: 042
     Dates: start: 201401, end: 201411
  4. 5-FLUOROURACIL                     /00098801/ [Suspect]
     Active Substance: FLUOROURACIL
     Indication: ADENOCARCINOMA OF COLON
     Dosage: UNK, UNKNOWN
     Route: 042
     Dates: start: 201401, end: 201411

REACTIONS (7)
  - Metastases to peritoneum [Unknown]
  - Adenocarcinoma of colon [Unknown]
  - Metastases to liver [Unknown]
  - Paraesthesia [Unknown]
  - Dermatitis acneiform [Recovering/Resolving]
  - Malignant neoplasm progression [Unknown]
  - Metastases to lymph nodes [Unknown]

NARRATIVE: CASE EVENT DATE: 2014
